FAERS Safety Report 7129353-0 (Version None)
Quarter: 2010Q4

REPORT INFORMATION
  Report Type: 
  Country: None (occurrence: None)
  Receive Date: 20101112
  Receipt Date: 20101101
  Transmission Date: 20110411
  Serious: Yes (Other)
  Sender: FDA-Public Use
  Company Number: TPA2010A05632

PATIENT
  Sex: Male

DRUGS (4)
  1. ACTOS [Suspect]
  2. AVAPRO [Concomitant]
  3. TRICOR [Concomitant]
  4. PRAVACHOL [Concomitant]

REACTIONS (3)
  - DEPRESSION [None]
  - ERECTILE DYSFUNCTION [None]
  - RECTAL CANCER STAGE III [None]
